FAERS Safety Report 25461510 (Version 1)
Quarter: 2025Q2

REPORT INFORMATION
  Report Type: Spontaneous
  Country: CN (occurrence: CN)
  Receive Date: 20250620
  Receipt Date: 20250620
  Transmission Date: 20250716
  Serious: Yes (Death)
  Sender: MERCK SHARP & DOHME LLC
  Company Number: CN-009507513-2297084

PATIENT
  Age: 70 Year
  Sex: Male

DRUGS (2)
  1. TEMOZOLOMIDE [Suspect]
     Active Substance: TEMOZOLOMIDE
     Indication: Glioblastoma
     Dosage: 75 MG/M2 DAILY (LOT# WAS NOT PROVIDED), D1-42
     Route: 065
     Dates: start: 20190415, end: 20190526
  2. TEMOZOLOMIDE [Suspect]
     Active Substance: TEMOZOLOMIDE
     Indication: Glioblastoma
     Route: 065
     Dates: start: 20190624

REACTIONS (3)
  - Glioblastoma [Fatal]
  - Malignant neoplasm progression [Fatal]
  - Recurrent cancer [Fatal]

NARRATIVE: CASE EVENT DATE: 20200301
